FAERS Safety Report 16117354 (Version 7)
Quarter: 2020Q3

REPORT INFORMATION
  Report Type: Other
  Country: GB (occurrence: GB)
  Receive Date: 20190326
  Receipt Date: 20200914
  Transmission Date: 20201102
  Serious: Yes (Death, Hospitalization)
  Sender: FDA-Public Use
  Company Number: GB-ROCHE-2176586

PATIENT
  Age: 47 Year
  Sex: Female

DRUGS (50)
  1. PARACETAMOL [Concomitant]
     Active Substance: ACETAMINOPHEN
     Indication: BONE PAIN
     Route: 048
  2. DENOSUMAB [Concomitant]
     Active Substance: DENOSUMAB
     Route: 058
     Dates: start: 20171007, end: 20181120
  3. ZOMORPH [Concomitant]
     Active Substance: MORPHINE SULFATE
     Indication: MUSCULOSKELETAL CHEST PAIN
     Route: 048
     Dates: start: 20190116
  4. MIDAZOLAM. [Concomitant]
     Active Substance: MIDAZOLAM
     Indication: BONE PAIN
     Route: 058
     Dates: start: 20190515, end: 20190515
  5. MIDAZOLAM. [Concomitant]
     Active Substance: MIDAZOLAM
     Route: 058
     Dates: start: 20190516, end: 20190517
  6. GABAPENTIN. [Concomitant]
     Active Substance: GABAPENTIN
     Indication: BONE PAIN
     Dosage: 300MG MORNING AND 600MG EVENING
     Route: 048
     Dates: start: 20181229
  7. FLUCLOXACILLIN [Concomitant]
     Active Substance: FLUCLOXACILLIN
     Indication: SKIN INFECTION
     Route: 048
     Dates: start: 20180803, end: 20180810
  8. MORPHINE [Concomitant]
     Active Substance: MORPHINE
     Indication: BONE PAIN
     Route: 042
     Dates: start: 20190324, end: 20190324
  9. DIAMORPHINE [Concomitant]
     Active Substance: DIAMORPHINE
     Route: 058
     Dates: start: 20190515, end: 20190516
  10. MIDAZOLAM. [Concomitant]
     Active Substance: MIDAZOLAM
     Route: 058
     Dates: start: 20190515, end: 20190516
  11. GABAPENTIN. [Concomitant]
     Active Substance: GABAPENTIN
     Indication: MUSCULOSKELETAL CHEST PAIN
     Route: 048
     Dates: end: 20181220
  12. LANSOPRAZOLE. [Concomitant]
     Active Substance: LANSOPRAZOLE
     Route: 048
  13. FLU VACCINE [Concomitant]
     Active Substance: INFLUENZA VIRUS VACCINE
     Route: 058
     Dates: start: 20171211, end: 20171211
  14. DEXAMETHASONE. [Concomitant]
     Active Substance: DEXAMETHASONE
     Route: 048
     Dates: start: 20190502, end: 20190509
  15. DEXAMETHASONE. [Concomitant]
     Active Substance: DEXAMETHASONE
     Route: 048
     Dates: start: 20190501, end: 20190501
  16. LETROZOLE. [Suspect]
     Active Substance: LETROZOLE
     Indication: BREAST CANCER
     Route: 048
     Dates: start: 201709
  17. ORAMORPH [Concomitant]
     Active Substance: MORPHINE SULFATE
     Route: 048
     Dates: start: 20190506, end: 20190513
  18. CALCICHEW D3 FORTE [Concomitant]
     Active Substance: CALCIUM\CHOLECALCIFEROL
     Dosage: DOSE: 1 TABLET
     Route: 048
     Dates: start: 20171007
  19. LAXIDO [Concomitant]
     Active Substance: POLYETHYLENE GLYCOL 3350\POTASSIUM CHLORIDE\SODIUM BICARBONATE\SODIUM CHLORIDE
     Dosage: DOSE: 1 SACHET
     Route: 048
  20. LEVOMEPROMAZINE [Concomitant]
     Active Substance: LEVOMEPROMAZINE
     Route: 058
     Dates: start: 20190516, end: 20190517
  21. HALOPERIDOL. [Concomitant]
     Active Substance: HALOPERIDOL
     Route: 058
     Dates: start: 20190514, end: 20190514
  22. DIFFLAM [Concomitant]
     Active Substance: BENZYDAMINE HYDROCHLORIDE
     Route: 061
     Dates: start: 20190513, end: 20190513
  23. SANDO K [Concomitant]
     Indication: HYPOKALAEMIA
     Route: 048
     Dates: start: 20190513, end: 20190513
  24. TRASTUZUMAB EMTANSINE [Suspect]
     Active Substance: ADO-TRASTUZUMAB EMTANSINE
     Indication: BREAST CANCER
     Route: 042
     Dates: start: 20190115
  25. ORAMORPH [Concomitant]
     Active Substance: MORPHINE SULFATE
     Indication: BONE PAIN
     Route: 048
     Dates: end: 20171002
  26. IBUPROFEN. [Concomitant]
     Active Substance: IBUPROFEN
     Route: 048
  27. GLYCOPYRONIUM [Concomitant]
     Active Substance: GLYCOPYRRONIUM
     Route: 058
     Dates: start: 20190515, end: 20190517
  28. NYSTATIN. [Concomitant]
     Active Substance: NYSTATIN
     Indication: ORAL CANDIDIASIS
     Route: 048
     Dates: start: 20190508, end: 20190512
  29. PARACETAMOL [Concomitant]
     Active Substance: ACETAMINOPHEN
     Route: 042
     Dates: start: 20190324, end: 20190515
  30. DIAMORPHINE [Concomitant]
     Active Substance: DIAMORPHINE
     Indication: BONE PAIN
     Route: 042
     Dates: start: 20190324, end: 20190324
  31. DIAMORPHINE [Concomitant]
     Active Substance: DIAMORPHINE
     Route: 058
     Dates: start: 20190514, end: 20190514
  32. INHIXA [Concomitant]
     Active Substance: ENOXAPARIN SODIUM
     Route: 058
     Dates: start: 20190501, end: 20190513
  33. TRASTUZUMAB. [Suspect]
     Active Substance: TRASTUZUMAB
     Indication: BREAST CANCER
     Route: 058
     Dates: start: 20170918, end: 20181205
  34. DIAMORPHINE [Concomitant]
     Active Substance: DIAMORPHINE
     Route: 058
     Dates: start: 20190515, end: 20190516
  35. DIAMORPHINE [Concomitant]
     Active Substance: DIAMORPHINE
     Route: 058
     Dates: start: 20190516, end: 20190517
  36. MIDAZOLAM. [Concomitant]
     Active Substance: MIDAZOLAM
     Route: 058
     Dates: start: 20190514, end: 20190514
  37. LEVOMEPROMAZINE [Concomitant]
     Active Substance: LEVOMEPROMAZINE
     Indication: RESTLESSNESS
     Route: 058
     Dates: start: 20190515, end: 20190516
  38. LEVOMEPROMAZINE [Concomitant]
     Active Substance: LEVOMEPROMAZINE
     Route: 058
     Dates: start: 20190515, end: 20190515
  39. DEXAMETHASONE. [Concomitant]
     Active Substance: DEXAMETHASONE
     Route: 048
     Dates: start: 20190510, end: 20190513
  40. CITALOPRAM [Concomitant]
     Active Substance: CITALOPRAM HYDROBROMIDE
     Route: 048
  41. SALBUTAMOL [Concomitant]
     Active Substance: ALBUTEROL
     Route: 055
  42. GABAPENTIN. [Concomitant]
     Active Substance: GABAPENTIN
     Route: 048
     Dates: start: 20190324, end: 20190513
  43. SENNA [Concomitant]
     Active Substance: SENNA LEAF\SENNOSIDES\SENNOSIDES A AND B
     Route: 048
  44. DIAMORPHINE [Concomitant]
     Active Substance: DIAMORPHINE
     Route: 058
     Dates: start: 20190514, end: 20190515
  45. DIAMORPHINE [Concomitant]
     Active Substance: DIAMORPHINE
     Route: 058
     Dates: start: 20190514, end: 20190515
  46. MIDAZOLAM. [Concomitant]
     Active Substance: MIDAZOLAM
     Route: 058
     Dates: start: 20190515, end: 20190516
  47. MIDAZOLAM. [Concomitant]
     Active Substance: MIDAZOLAM
     Route: 058
     Dates: start: 20190514, end: 20190515
  48. GLYCOPYRONIUM [Concomitant]
     Active Substance: GLYCOPYRRONIUM
     Route: 058
     Dates: start: 20190515, end: 20190516
  49. LORAZEPAM. [Concomitant]
     Active Substance: LORAZEPAM
     Route: 048
     Dates: start: 20190514, end: 20190514
  50. DEXAMETHASONE. [Concomitant]
     Active Substance: DEXAMETHASONE
     Route: 048
     Dates: start: 20190514, end: 20190515

REACTIONS (8)
  - Oral candidiasis [Recovered/Resolved]
  - Hypoaesthesia [Not Recovered/Not Resolved]
  - Sinusitis [Recovered/Resolved]
  - Pain in extremity [Not Recovered/Not Resolved]
  - Pneumonia [Fatal]
  - Neck pain [Recovered/Resolved]
  - Arthralgia [Recovered/Resolved]
  - Skin infection [Recovered/Resolved]

NARRATIVE: CASE EVENT DATE: 20180305
